FAERS Safety Report 9619577 (Version 3)
Quarter: 2013Q4

REPORT INFORMATION
  Report Type: Spontaneous
  Country: LV (occurrence: LV)
  Receive Date: 20131014
  Receipt Date: 20131220
  Transmission Date: 20140711
  Serious: Yes (Hospitalization)
  Sender: FDA-Public Use
  Company Number: LV-GE HEALTHCARE MEDICAL DIAGNOSTICS-OMPQ-E2B_00000035

PATIENT
  Age: 74 Year
  Sex: Female
  Weight: 78 kg

DRUGS (3)
  1. OMNIPAQUE [Suspect]
     Indication: COMPUTERISED TOMOGRAM
     Route: 042
     Dates: start: 20131003, end: 20131003
  2. OMEPRAZOLE [Concomitant]
     Dosage: LIETOSANAS SAKUMS NAV ZINAMS
     Route: 048
  3. CERUCAL [Concomitant]
     Dosage: LIETOSANAS SAKUMS NAV ZINAMS
     Route: 048

REACTIONS (4)
  - Renal pain [Recovering/Resolving]
  - Myalgia [Recovering/Resolving]
  - Pyrexia [Recovering/Resolving]
  - Vomiting [Recovering/Resolving]
